FAERS Safety Report 15534833 (Version 1)
Quarter: 2018Q4

REPORT INFORMATION
  Report Type: Spontaneous
  Country: US (occurrence: US)
  Receive Date: 20181022
  Receipt Date: 20181022
  Transmission Date: 20190205
  Serious: No
  Sender: FDA-Public Use
  Company Number: US-TEVA-2018-US-879616

PATIENT
  Age: 69 Year
  Sex: Male

DRUGS (1)
  1. OCTREOTIDE. [Suspect]
     Active Substance: OCTREOTIDE
     Indication: NEUROENDOCRINE CARCINOMA METASTATIC
     Dosage: 125 MICROG/H FOR 24H
     Route: 042
     Dates: start: 20151028

REACTIONS (1)
  - Hypersensitivity [Unknown]
